FAERS Safety Report 5044488-4 (Version None)
Quarter: 2006Q3

REPORT INFORMATION
  Report Type: 
  Country: None (occurrence: None)
  Receive Date: 20060706
  Receipt Date: 20060629
  Transmission Date: 20061208
  Serious: Yes (Other)
  Sender: FDA-Public Use
  Company Number: GB-GLAXOSMITHKLINE-B0429290A

PATIENT
  Sex: Female

DRUGS (4)
  1. FLIXOTIDE [Suspect]
     Indication: ASTHMA
     Route: 055
  2. SERETIDE [Suspect]
     Indication: ASTHMA
     Route: 055
  3. ORAL STEROIDS [Suspect]
     Route: 048
  4. NEBULISER (UNKNOWN MEDICATIONS) [Concomitant]

REACTIONS (4)
  - ASTHMA [None]
  - FOOT FRACTURE [None]
  - HAND FRACTURE [None]
  - TREATMENT NONCOMPLIANCE [None]
